FAERS Safety Report 9707424 (Version 2)
Quarter: 2013Q4

REPORT INFORMATION
  Report Type: Spontaneous
  Country: US (occurrence: US)
  Receive Date: 20131125
  Receipt Date: 20131210
  Transmission Date: 20140711
  Serious: No
  Sender: FDA-Public Use
  Company Number: US-TEVA-374153USA

PATIENT
  Age: 30 Year
  Sex: Female
  Weight: 73.55 kg

DRUGS (1)
  1. PARAGARD 380A [Suspect]
     Indication: CONTRACEPTION
     Route: 015
     Dates: start: 2007, end: 20121128

REACTIONS (8)
  - Pelvic pain [Recovering/Resolving]
  - Dysmenorrhoea [Not Recovered/Not Resolved]
  - Vaginal discharge [Unknown]
  - Fungal infection [Recovered/Resolved]
  - Uterine leiomyoma [Recovered/Resolved]
  - Medical device complication [Not Recovered/Not Resolved]
  - Dyspareunia [Unknown]
  - Urinary tract infection [Unknown]
